FAERS Safety Report 6745042-6 (Version None)
Quarter: 2010Q2

REPORT INFORMATION
  Report Type: 
  Country: None (occurrence: None)
  Receive Date: 20100527
  Receipt Date: 20100514
  Transmission Date: 20101027
  Serious: Yes (Other)
  Sender: FDA-Public Use
  Company Number: US-WATSON-2010-07000

PATIENT
  Age: 58 Year
  Sex: Male

DRUGS (8)
  1. PREDNISOLONE [Suspect]
     Indication: CHEMOTHERAPY
     Dosage: UNK
  2. MUSTARGEN [Suspect]
     Indication: LYMPHOMA
     Dosage: UNK
  3. VINCRISTINE [Suspect]
     Indication: LYMPHOMA
     Dosage: UNK
  4. PROCARBAZINE [Suspect]
     Indication: LYMPHOMA
     Dosage: UNK
  5. ADRIAMYCIN PFS [Suspect]
     Indication: LYMPHOMA
     Dosage: UNK
  6. BLEOMYCIN [Suspect]
     Indication: LYMPHOMA
     Dosage: UNK
  7. VINBLASTINE SULFATE [Suspect]
     Indication: LYMPHOMA
     Dosage: UNK
  8. DACARBAZINE [Suspect]
     Indication: LYMPHOMA

REACTIONS (2)
  - ANOSMIA [None]
  - HYPOSMIA [None]
